FAERS Safety Report 7100969-0 (Version None)
Quarter: 2010Q4

REPORT INFORMATION
  Report Type: 
  Country: None (occurrence: None)
  Receive Date: 20101113
  Receipt Date: 20100405
  Transmission Date: 20110411
  Serious: No
  Sender: FDA-Public Use
  Company Number: US-ALLERGAN-1004475US

PATIENT
  Age: 50 Year
  Sex: Female

DRUGS (6)
  1. BOTOX COSMETIC [Suspect]
     Indication: SKIN WRINKLING
     Dosage: 48 UNITS, SINGLE
     Route: 030
     Dates: start: 20100303, end: 20100303
  2. LAMICTAL [Concomitant]
  3. CYMBALTA [Concomitant]
  4. ALLEGRA [Concomitant]
  5. ZANEX [Concomitant]
  6. BIRTH CONTROL PILL [Concomitant]

REACTIONS (1)
  - ATROPHY [None]
